FAERS Safety Report 12656312 (Version 1)
Quarter: 2016Q3

REPORT INFORMATION
  Report Type: Spontaneous
  Country: US (occurrence: US)
  Receive Date: 20160816
  Receipt Date: 20160816
  Transmission Date: 20161109
  Serious: No
  Sender: FDA-Public Use
  Company Number: US-PERRIGO-15US008483

PATIENT
  Age: 66 Year
  Sex: Male
  Weight: 91.16 kg

DRUGS (11)
  1. LORATADINE. [Suspect]
     Active Substance: LORATADINE
     Indication: THROAT IRRITATION
     Dosage: 10 MG, QD
     Route: 048
     Dates: start: 20150806
  2. MAGNESIUM [Concomitant]
     Active Substance: MAGNESIUM
     Indication: ROUTINE HEALTH MAINTENANCE
     Dosage: UNK
     Route: 065
     Dates: start: 2013
  3. FLUTICASONE PROPIONATE. [Concomitant]
     Active Substance: FLUTICASONE PROPIONATE
     Indication: CHRONIC SINUSITIS
     Dosage: 50 MCG
     Route: 065
     Dates: start: 2011
  4. NIACIN. [Concomitant]
     Active Substance: NIACIN
     Indication: ROUTINE HEALTH MAINTENANCE
     Dosage: UNK
     Route: 065
     Dates: start: 2011
  5. VITAMIN D3 [Concomitant]
     Active Substance: CHOLECALCIFEROL
     Indication: ROUTINE HEALTH MAINTENANCE
     Dosage: UNK
     Route: 065
     Dates: start: 2013
  6. LORATADINE. [Suspect]
     Active Substance: LORATADINE
     Indication: RHINORRHOEA
  7. CALCIUM [Concomitant]
     Active Substance: CALCIUM
     Indication: ROUTINE HEALTH MAINTENANCE
     Dosage: 1200
     Route: 065
     Dates: start: 2011
  8. ASPIRIN. [Concomitant]
     Active Substance: ASPIRIN
     Indication: PROPHYLAXIS
     Dosage: 81 MG
     Route: 065
     Dates: start: 2010
  9. OMEGA 3                            /01333901/ [Concomitant]
     Active Substance: FISH OIL\TOCOPHEROL
     Indication: ROUTINE HEALTH MAINTENANCE
     Dosage: UNK250 MG
     Route: 065
     Dates: start: 2011
  10. DIOVAN HCT [Concomitant]
     Active Substance: HYDROCHLOROTHIAZIDE\VALSARTAN
     Indication: HYPERTENSION
     Dosage: 160/25
     Route: 065
  11. PRAVASTATIN. [Concomitant]
     Active Substance: PRAVASTATIN
     Indication: BLOOD CHOLESTEROL INCREASED
     Dosage: UNK
     Route: 065
     Dates: start: 2012

REACTIONS (1)
  - Drug ineffective [Unknown]

NARRATIVE: CASE EVENT DATE: 20150806
